FAERS Safety Report 4398522-5 (Version None)
Quarter: 2004Q3

REPORT INFORMATION
  Report Type: 
  Country: None (occurrence: None)
  Receive Date: 20040715
  Receipt Date: 20040614
  Transmission Date: 20050211
  Serious: Yes (Hospitalization)
  Sender: FDA-Public Use
  Company Number: 2004/JP001174

PATIENT
  Age: 59 Year
  Sex: Female
  Weight: 64 kg

DRUGS (10)
  1. SAWACILLIN [Suspect]
     Indication: NASOPHARYNGITIS
     Dosage: 500MG PER DAY
     Route: 048
     Dates: start: 20040427, end: 20040429
  2. VOLTAREN [Suspect]
     Indication: NASOPHARYNGITIS
     Route: 048
     Dates: start: 20040427, end: 20040429
  3. BUFFERIN [Suspect]
     Indication: NASOPHARYNGITIS
     Route: 048
     Dates: start: 20040427, end: 20040429
  4. KEFLEX [Suspect]
     Indication: NASOPHARYNGITIS
     Route: 048
     Dates: start: 20040430, end: 20040503
  5. LOXONIN [Suspect]
     Indication: NASOPHARYNGITIS
     Route: 048
     Dates: start: 20040430, end: 20040503
  6. DASEN [Concomitant]
     Route: 048
     Dates: start: 20040427, end: 20040429
  7. MEDICON [Concomitant]
     Route: 048
     Dates: start: 20040427, end: 20040503
  8. CELESTAMINE TAB [Concomitant]
     Route: 048
     Dates: start: 20040430, end: 20040503
  9. MUCOSTA [Concomitant]
     Route: 048
     Dates: start: 20040430, end: 20040503
  10. AMLODIN [Concomitant]

REACTIONS (7)
  - COUGH [None]
  - DRUG ERUPTION [None]
  - ERYTHEMA [None]
  - MALAISE [None]
  - NAUSEA [None]
  - PRODUCTIVE COUGH [None]
  - RASH [None]
